FAERS Safety Report 4813302-1 (Version None)
Quarter: 2005Q4

REPORT INFORMATION
  Report Type: 
  Country: None (occurrence: None)
  Receive Date: 20051028
  Receipt Date: 20050426
  Transmission Date: 20060501
  Serious: No
  Sender: FDA-Public Use
  Company Number: US-GLAXOSMITHKLINE-A0555823A

PATIENT
  Sex: Female

DRUGS (10)
  1. ADVAIR DISKUS 100/50 [Suspect]
     Indication: ASTHMA
     Dosage: 1PUFF TWICE PER DAY
     Route: 055
     Dates: start: 20020101
  2. FLOVENT [Suspect]
     Indication: ASTHMA
     Dosage: 1PUFF UNKNOWN
     Route: 055
     Dates: start: 20050423
  3. NEXIUM [Concomitant]
  4. PREMARIN [Concomitant]
  5. FLUOXETINE [Concomitant]
  6. ALBUTEROL [Concomitant]
  7. SEREVENT [Concomitant]
  8. SINGULAIR [Concomitant]
  9. SALSALATE [Concomitant]
  10. TRAZODONE HCL [Concomitant]

REACTIONS (3)
  - EYE IRRITATION [None]
  - FLUSHING [None]
  - PRURITUS [None]
